FAERS Safety Report 8965685 (Version 1)
Quarter: 2012Q4

REPORT INFORMATION
  Report Type: Spontaneous
  Country: US (occurrence: None)
  Receive Date: 20121212
  Receipt Date: 20121212
  Transmission Date: 20130627
  Serious: No
  Sender: FDA-Public Use
  Company Number: None

PATIENT
  Age: 76 Year
  Sex: Male
  Weight: 109.77 kg

DRUGS (1)
  1. AVODART [Suspect]
     Indication: BPH
     Dates: start: 20020701, end: 20120801

REACTIONS (2)
  - Mental impairment [None]
  - Disturbance in attention [None]
